FAERS Safety Report 6610542-6 (Version None)
Quarter: 2010Q1

REPORT INFORMATION
  Report Type: 
  Country: None (occurrence: None)
  Receive Date: 20100302
  Receipt Date: 20100226
  Transmission Date: 20100710
  Serious: Yes (Hospitalization)
  Sender: FDA-Public Use
  Company Number: B0636025A

PATIENT
  Age: 76 Year
  Sex: Female
  Weight: 108 kg

DRUGS (24)
  1. XENICAL [Suspect]
     Indication: OBESITY
     Dosage: 120MG THREE TIMES PER DAY
     Route: 048
     Dates: start: 20070312
  2. LEVOTHYROXINE SODIUM [Concomitant]
     Dosage: 50MCG PER DAY
  3. BIMATOPROST [Concomitant]
     Route: 047
  4. PRAZOSIN HYDROCHLORIDE [Concomitant]
     Indication: HYPERTENSION
     Route: 048
  5. NICORANDIL [Concomitant]
     Indication: ANGINA PECTORIS
     Dosage: 40MG PER DAY
     Route: 048
  6. PARACETAMOL [Concomitant]
     Indication: PAIN
     Route: 048
     Dates: start: 20070718
  7. GLYCERYL TRINITRATE [Concomitant]
     Indication: ANGINA PECTORIS
     Route: 060
  8. FUROSEMIDE [Concomitant]
     Dosage: 40MG PER DAY
  9. BECLOMETHASONE DIPROPIONATE [Concomitant]
     Route: 045
  10. DORZOLAMIDE [Concomitant]
     Route: 047
  11. QUININE BISULPHATE [Concomitant]
     Dosage: 300MG PER DAY
     Route: 048
  12. ALENDRONIC ACID [Concomitant]
     Route: 048
  13. AMLODIPINE [Concomitant]
     Indication: HYPERTENSION
     Dosage: 10MG PER DAY
     Route: 048
  14. DOXAZOSIN MESYLATE [Concomitant]
     Dosage: 4MG PER DAY
  15. TIMODINE [Concomitant]
  16. METFORMIN HYDROCHLORIDE [Concomitant]
     Dosage: 1000MG PER DAY
     Route: 048
  17. VIOXX [Concomitant]
     Indication: PAIN
     Route: 048
  18. CODEINE SULFATE [Concomitant]
  19. LANSOPRAZOLE [Concomitant]
     Indication: ANTACID THERAPY
     Dosage: 15MG PER DAY
     Route: 048
  20. RAMIPRIL [Concomitant]
     Indication: HYPERTENSION
     Dosage: 10MG PER DAY
     Route: 048
  21. SIMVASTATIN [Concomitant]
     Indication: BLOOD CHOLESTEROL INCREASED
     Dosage: 20MG PER DAY
     Route: 048
  22. CITALOPRAM HYDROBROMIDE [Concomitant]
     Indication: DEPRESSION
     Dosage: 20MG PER DAY
     Route: 048
  23. ALLOPURINOL [Concomitant]
     Indication: GOUT
     Dosage: 300MG PER DAY
     Route: 048
  24. ISOSORBIDE MONONITRATE [Concomitant]

REACTIONS (4)
  - CONCUSSION [None]
  - DYSPNOEA [None]
  - FALL [None]
  - RIB FRACTURE [None]
